FAERS Safety Report 22605191 (Version 1)
Quarter: 2023Q2

REPORT INFORMATION
  Report Type: Spontaneous
  Country: US (occurrence: None)
  Receive Date: 20230614
  Receipt Date: 20230614
  Transmission Date: 20230721
  Serious: Yes (Life-Threatening, Hospitalization, Disabling)
  Sender: FDA-Public Use
  Company Number: None

PATIENT
  Age: 75 Year
  Sex: Male
  Weight: 103.32 kg

DRUGS (1)
  1. LENVIMA [Suspect]
     Active Substance: LENVATINIB
     Indication: Hepatocellular carcinoma
     Dosage: FREQUENCY : DAILY;?
     Route: 048
     Dates: start: 20230531, end: 20230603

REACTIONS (6)
  - Tachycardia [None]
  - Dyspnoea [None]
  - Fall [None]
  - Asthenia [None]
  - Cardiac failure [None]
  - Toxicity to various agents [None]

NARRATIVE: CASE EVENT DATE: 20230603
